FAERS Safety Report 4677360-X (Version None)
Quarter: 2005Q2

REPORT INFORMATION
  Report Type: 
  Country: None (occurrence: None)
  Receive Date: 20050525
  Receipt Date: 20050525
  Transmission Date: 20051028
  Serious: No
  Sender: FDA-Public Use
  Company Number: None

PATIENT
  Age: 75 Year
  Sex: Male

DRUGS (1)
  1. HALOPERIDOL [Suspect]
     Indication: SEDATION
     Dosage: 1-2MG IV Q 4 HOURS PRN
     Route: 042

REACTIONS (2)
  - POST PROCEDURAL COMPLICATION [None]
  - PYREXIA [None]
